FAERS Safety Report 7895886-2 (Version None)
Quarter: 2011Q4

REPORT INFORMATION
  Report Type: 
  Country: None (occurrence: None)
  Receive Date: 20111104
  Receipt Date: 20111104
  Transmission Date: 20120403
  Serious: Yes (Hospitalization)
  Sender: FDA-Public Use
  Company Number: None

PATIENT
  Age: 87 Year
  Sex: Female
  Weight: 46.6 kg

DRUGS (10)
  1. DOCUSATE [Concomitant]
  2. PRADAXA [Suspect]
     Indication: ATRIAL FIBRILLATION
     Dosage: 150 MG BID PO
     Route: 048
     Dates: start: 20110801
  3. TEMAZEPAM [Concomitant]
  4. TOPROL-XL [Concomitant]
  5. APRESOLINE [Concomitant]
  6. ANASTROZOLE [Concomitant]
  7. SYNTHROID [Concomitant]
  8. BONIVA [Concomitant]
  9. M.V.I. [Concomitant]
  10. BENICAR HCT [Concomitant]

REACTIONS (5)
  - LETHARGY [None]
  - FALL [None]
  - ENDOCARDITIS [None]
  - DEVICE RELATED INFECTION [None]
  - CONFUSIONAL STATE [None]
